FAERS Safety Report 22084027 (Version 3)
Quarter: 2023Q2

REPORT INFORMATION
  Report Type: Spontaneous
  Country: CA (occurrence: CA)
  Receive Date: 20230310
  Receipt Date: 20230410
  Transmission Date: 20230722
  Serious: Yes (Other)
  Sender: FDA-Public Use
  Company Number: CA-PFIZER INC-202300073334

PATIENT
  Age: 40 Year
  Sex: Female

DRUGS (5)
  1. XELJANZ [Suspect]
     Active Substance: TOFACITINIB CITRATE
     Indication: Colitis ulcerative
     Dosage: 10 MG, ALTERNATE DAY
     Route: 048
     Dates: start: 20230209, end: 20230214
  2. XELJANZ [Suspect]
     Active Substance: TOFACITINIB CITRATE
     Dosage: 5 MG, ALTERNATE DAY
     Route: 048
     Dates: start: 20230216
  3. XELJANZ [Suspect]
     Active Substance: TOFACITINIB CITRATE
     Dosage: 5 MG, ALTERNATE DAY
     Route: 048
     Dates: start: 20230302
  4. XELJANZ [Suspect]
     Active Substance: TOFACITINIB CITRATE
     Dosage: 10 MG, ALTERNATE DAY
     Route: 048
     Dates: start: 20230306, end: 202303
  5. PREDNISONE [Concomitant]
     Active Substance: PREDNISONE
     Dosage: 1 DF

REACTIONS (8)
  - Condition aggravated [Not Recovered/Not Resolved]
  - Therapeutic response shortened [Unknown]
  - Skin irritation [Unknown]
  - Agitation [Unknown]
  - Anxiety [Unknown]
  - Restless legs syndrome [Unknown]
  - Asthenia [Unknown]
  - Off label use [Unknown]

NARRATIVE: CASE EVENT DATE: 20230101
